FAERS Safety Report 7319056-1 (Version None)
Quarter: 2011Q1

REPORT INFORMATION
  Report Type: 
  Country: None (occurrence: None)
  Receive Date: 20110214
  Receipt Date: 20110124
  Transmission Date: 20110831
  Serious: Yes (Hospitalization)
  Sender: FDA-Public Use
  Company Number: 026018

PATIENT
  Sex: Female

DRUGS (3)
  1. FENANTOIN [Concomitant]
  2. KEPPRA [Suspect]
     Indication: EPILEPSY
     Dosage: 1 G ORAL
     Route: 048
     Dates: start: 20100929, end: 20101006
  3. TRADOLAN [Concomitant]

REACTIONS (4)
  - HEADACHE [None]
  - MOVEMENT DISORDER [None]
  - MUSCLE TWITCHING [None]
  - HALLUCINATION, VISUAL [None]
